FAERS Safety Report 8586530 (Version 5)
Quarter: 2013Q3

REPORT INFORMATION
  Report Type: Spontaneous
  Country: JP (occurrence: JP)
  Receive Date: 20120530
  Receipt Date: 20130930
  Transmission Date: 20140515
  Serious: Yes (Death)
  Sender: FDA-Public Use
  Company Number: JP-GLAXOSMITHKLINE-B0804204A

PATIENT
  Age: 35 Year
  Sex: Female

DRUGS (10)
  1. RELENZA [Suspect]
     Indication: ANTIVIRAL PROPHYLAXIS
     Dosage: 10MG PER DAY
     Route: 055
     Dates: start: 20120316, end: 20120316
  2. PELEX [Concomitant]
     Indication: GASTROENTERITIS BACTERIAL
     Dosage: 1IUAX THREE TIMES PER DAY
     Route: 048
     Dates: start: 20120315, end: 20120315
  3. LEVOFLOXACIN HYDRATE [Concomitant]
     Indication: GASTROENTERITIS BACTERIAL
     Dosage: 1IUAX THREE TIMES PER DAY
     Route: 048
     Dates: start: 20120315, end: 20120315
  4. MUCOSTA [Concomitant]
     Indication: GASTROENTERITIS BACTERIAL
     Dosage: 1IUAX THREE TIMES PER DAY
     Route: 048
     Dates: start: 20120315, end: 20120315
  5. BERBERINE [Concomitant]
     Indication: GASTROENTERITIS BACTERIAL
     Dosage: 1IUAX THREE TIMES PER DAY
     Route: 048
     Dates: start: 20120315, end: 20120315
  6. CALONAL [Concomitant]
     Indication: GASTROENTERITIS BACTERIAL
     Dosage: 1IUAX THREE TIMES PER DAY
     Route: 048
     Dates: start: 20120315, end: 20120315
  7. SOLDEM [Concomitant]
     Indication: GASTROENTERITIS BACTERIAL
     Dosage: 500ML PER DAY
     Route: 042
     Dates: start: 20120315, end: 20120315
  8. SOLDEM [Concomitant]
     Indication: GASTROENTERITIS BACTERIAL
     Dosage: 500ML TWICE PER DAY
     Route: 042
     Dates: start: 20120316, end: 20120316
  9. EXACIN [Concomitant]
     Indication: GASTROENTERITIS BACTERIAL
     Dosage: 1IUAX PER DAY
     Route: 042
     Dates: start: 20120316, end: 20120316
  10. CEFTRIAXONE SODIUM HYDRATE [Concomitant]
     Indication: PYREXIA
     Dosage: 2G PER DAY
     Route: 042
     Dates: start: 20120316, end: 20120316

REACTIONS (11)
  - Anaphylactic shock [Fatal]
  - Cardiac failure acute [Fatal]
  - Acute respiratory failure [Fatal]
  - Myocarditis [Unknown]
  - Pulse absent [Unknown]
  - Depressed level of consciousness [Unknown]
  - Hypersensitivity [Unknown]
  - Dyspnoea [Unknown]
  - Joint stiffness [Unknown]
  - Muscle rigidity [Unknown]
  - Eyelid disorder [Unknown]
